FAERS Safety Report 22394360 (Version 1)
Quarter: 2023Q2

REPORT INFORMATION
  Report Type: Spontaneous
  Country: US (occurrence: None)
  Receive Date: 20230530
  Receipt Date: 20230530
  Transmission Date: 20230722
  Serious: Yes (Other)
  Sender: FDA-Public Use
  Company Number: None

PATIENT

DRUGS (1)
  1. ALUMINUM CHLOROHYDRATE OR ALUMINUM ZIRCONIUM TETRACHLOROHYDREX GLY [Suspect]
     Active Substance: ALUMINUM CHLOROHYDRATE OR ALUMINUM ZIRCONIUM TETRACHLOROHYDREX GLY
     Route: 061

REACTIONS (4)
  - Application site mass [None]
  - Application site papules [None]
  - Application site swelling [None]
  - Pain of skin [None]
